FAERS Safety Report 25628631 (Version 1)
Quarter: 2025Q3

REPORT INFORMATION
  Report Type: Spontaneous
  Country: US (occurrence: US)
  Receive Date: 20250731
  Receipt Date: 20250731
  Transmission Date: 20251020
  Serious: No
  Sender: BAUSCH AND LOMB
  Company Number: US-BAUSCHBL-2025BNL013087

PATIENT
  Age: 66 Year
  Sex: Female
  Weight: 118 kg

DRUGS (2)
  1. BACITRACIN ZINC AND POLYMYXIN B SULFATE [Suspect]
     Active Substance: BACITRACIN ZINC\POLYMYXIN B SULFATE
     Indication: Hordeolum
     Route: 047
     Dates: start: 20250717, end: 20250719
  2. MELOXICAM [Concomitant]
     Active Substance: MELOXICAM
     Indication: Product used for unknown indication

REACTIONS (8)
  - Pruritus allergic [Recovering/Resolving]
  - Condition aggravated [Unknown]
  - Instillation site foreign body sensation [Unknown]
  - Erythema [Unknown]
  - Conjunctivitis allergic [Unknown]
  - Swelling [Unknown]
  - Skin exfoliation [Unknown]
  - Inappropriate schedule of product administration [Unknown]

NARRATIVE: CASE EVENT DATE: 20250701
